FAERS Safety Report 6685833-3 (Version None)
Quarter: 2010Q2

REPORT INFORMATION
  Report Type: 
  Country: None (occurrence: None)
  Receive Date: 20100419
  Receipt Date: 20100408
  Transmission Date: 20101027
  Serious: Yes (Other)
  Sender: FDA-Public Use
  Company Number: US-JNJFOC-20100403079

PATIENT
  Age: 78 Year
  Sex: Male

DRUGS (2)
  1. REMICADE [Suspect]
     Indication: COLITIS ULCERATIVE
     Route: 042
  2. REMICADE [Suspect]
     Route: 042

REACTIONS (5)
  - CHILLS [None]
  - CYANOSIS [None]
  - FEELING COLD [None]
  - INFUSION RELATED REACTION [None]
  - TREMOR [None]
